FAERS Safety Report 9919419 (Version 3)
Quarter: 2014Q2

REPORT INFORMATION
  Report Type: Spontaneous
  Country: JP (occurrence: JP)
  Receive Date: 20140224
  Receipt Date: 20140401
  Transmission Date: 20141212
  Serious: Yes (Death, Hospitalization)
  Sender: FDA-Public Use
  Company Number: JP-BAYER-2013-138300

PATIENT
  Age: 80 Year
  Sex: Female

DRUGS (7)
  1. STIVARGA [Suspect]
     Indication: COLON CANCER
     Dosage: 160 MG, QD
     Route: 048
     Dates: start: 20131031, end: 20131105
  2. STIVARGA [Suspect]
     Indication: COLON CANCER
     Dosage: 120 MG, QD
     Route: 048
     Dates: start: 20131114, end: 20131125
  3. STIVARGA [Suspect]
     Indication: COLON CANCER
     Dosage: 80 MG, QD
     Route: 048
     Dates: start: 20140116, end: 20140129
  4. STIVARGA [Suspect]
     Indication: COLON CANCER
     Dosage: 40 MG, QD
     Route: 048
     Dates: start: 20140130, end: 20140203
  5. ZOVIRAX [Suspect]
     Indication: HERPES ZOSTER
     Dosage: 750 MG, TID
     Dates: start: 20140203, end: 20140203
  6. ZOVIRAX [Suspect]
     Indication: HERPES ZOSTER
     Dosage: 750 MG, BID
     Dates: start: 20140204, end: 20140204
  7. ZOVIRAX [Suspect]
     Indication: HERPES ZOSTER
     Dosage: DAILY DOSE 750 MG
     Dates: start: 20140205, end: 20140206

REACTIONS (6)
  - Platelet count decreased [Not Recovered/Not Resolved]
  - Hypertension [Recovering/Resolving]
  - Aspartate aminotransferase increased [Not Recovered/Not Resolved]
  - Malaise [Not Recovered/Not Resolved]
  - Toxic encephalopathy [Recovering/Resolving]
  - Colon cancer [Fatal]
